FAERS Safety Report 8873440 (Version 2)
Quarter: 2012Q4

REPORT INFORMATION
  Report Type: 
  Country: DE (occurrence: DK)
  Receive Date: 20121030
  Receipt Date: 20121220
  Transmission Date: 20130627
  Serious: Yes (Hospitalization)
  Sender: FDA-Public Use
  Company Number: DK-ELI_LILLY_AND_COMPANY-DK201210005861

PATIENT
  Age: 76 Year
  Sex: Female
  Weight: 73 kg

DRUGS (3)
  1. EFIENT [Suspect]
     Indication: ACUTE CORONARY SYNDROME
     Dosage: 60 mg, UNK
  2. EFIENT [Suspect]
     Dosage: 10 mg, qd
  3. EFIENT [Suspect]
     Dosage: 5 mg, unknown

REACTIONS (2)
  - Coronary artery restenosis [Recovered/Resolved]
  - Angina unstable [Recovered/Resolved]
